FAERS Safety Report 25953168 (Version 4)
Quarter: 2025Q4

REPORT INFORMATION
  Report Type: Report from Study
  Country: CN (occurrence: CN)
  Receive Date: 20251023
  Receipt Date: 20251114
  Transmission Date: 20260118
  Serious: Yes (Other)
  Sender: PFIZER
  Company Number: CN-PFIZER INC-PV202500123768

PATIENT
  Age: 39 Year
  Sex: Female
  Weight: 47.5 kg

DRUGS (3)
  1. TIVDAK [Suspect]
     Active Substance: TISOTUMAB VEDOTIN-TFTV
     Indication: Cervix carcinoma stage III
     Dosage: 95 MG, Q3W
     Route: 042
     Dates: start: 20250828, end: 20250919
  2. PARAPLATIN [Suspect]
     Active Substance: CARBOPLATIN
     Indication: Cervix carcinoma stage III
     Dosage: 400 MG, Q3W
     Route: 042
     Dates: start: 20250919, end: 20250919
  3. CADONILIMAB [Suspect]
     Active Substance: CADONILIMAB
     Indication: Cervix carcinoma stage III
     Dosage: 375 MG, Q3W
     Route: 042
     Dates: start: 20250919, end: 20250919

REACTIONS (1)
  - Platelet count decreased [Recovered/Resolved]

NARRATIVE: CASE EVENT DATE: 20251009
